FAERS Safety Report 15572469 (Version 4)
Quarter: 2019Q3

REPORT INFORMATION
  Report Type: Spontaneous
  Country: US (occurrence: US)
  Receive Date: 20181031
  Receipt Date: 20190809
  Transmission Date: 20191004
  Serious: Yes (Other)
  Sender: FDA-Public Use
  Company Number: US-GLAXOSMITHKLINE-US2018193610

PATIENT
  Age: 31 Year
  Sex: Female
  Weight: 99.32 kg

DRUGS (2)
  1. BENLYSTA [Suspect]
     Active Substance: BELIMUMAB
     Dosage: 920 MG, CYC
     Route: 042
     Dates: start: 20181022
  2. BENLYSTA [Suspect]
     Active Substance: BELIMUMAB
     Indication: SYSTEMIC LUPUS ERYTHEMATOSUS
     Dosage: 920 MG, CYC
     Route: 042

REACTIONS (6)
  - Blood pressure increased [Unknown]
  - Systemic lupus erythematosus [Recovering/Resolving]
  - Feeling abnormal [Recovered/Resolved]
  - Chest discomfort [Recovering/Resolving]
  - Hypertension [Unknown]
  - Pruritus [Unknown]

NARRATIVE: CASE EVENT DATE: 20181022
